FAERS Safety Report 8906011 (Version 2)
Quarter: 2013Q1

REPORT INFORMATION
  Report Type: Spontaneous
  Country: FR (occurrence: FR)
  Receive Date: 20121109
  Receipt Date: 20130207
  Transmission Date: 20140127
  Serious: Yes (Life-Threatening, Hospitalization, Other)
  Sender: FDA-Public Use
  Company Number: FR-GLAXOSMITHKLINE-B0841467A

PATIENT
  Sex: Female

DRUGS (11)
  1. ARIXTRA [Suspect]
     Indication: PULMONARY EMBOLISM
     Dosage: 7.5MG PER DAY
     Route: 058
     Dates: start: 20120903, end: 20120924
  2. DUROGESIC [Concomitant]
  3. OXYNORM [Concomitant]
  4. POLYIONIQUE (GLUCOSE) [Concomitant]
  5. SPASFON [Concomitant]
  6. SOLUMEDROL [Concomitant]
     Dosage: 120MG PER DAY
  7. HALDOL [Concomitant]
  8. ACUPAN [Concomitant]
  9. INEXIUM [Concomitant]
  10. DROLEPTAN [Concomitant]
  11. SANDOSTATINE [Concomitant]

REACTIONS (3)
  - Abdominal wall haematoma [Not Recovered/Not Resolved]
  - Anaemia [Unknown]
  - Intentional drug misuse [Unknown]
